FAERS Safety Report 12360482 (Version 2)
Quarter: 2016Q2

REPORT INFORMATION
  Report Type: Spontaneous
  Country: US (occurrence: US)
  Receive Date: 20160512
  Receipt Date: 20160524
  Transmission Date: 20160815
  Serious: No
  Sender: FDA-Public Use
  Company Number: US-BIOGEN-2016BI00208468

PATIENT

DRUGS (1)
  1. TECFIDERA [Suspect]
     Active Substance: DIMETHYL FUMARATE
     Indication: MULTIPLE SCLEROSIS

REACTIONS (11)
  - Dyspepsia [Unknown]
  - Weight decreased [Unknown]
  - Rash macular [Unknown]
  - Gastric disorder [Unknown]
  - Ill-defined disorder [Unknown]
  - Abdominal distension [Unknown]
  - Flushing [Recovered/Resolved with Sequelae]
  - Rhinorrhoea [Unknown]
  - Memory impairment [Unknown]
  - Adverse reaction [Unknown]
  - Hot flush [Unknown]
